FAERS Safety Report 18331610 (Version 1)
Quarter: 2020Q3

REPORT INFORMATION
  Report Type: Spontaneous
  Country: CA (occurrence: CA)
  Receive Date: 20200930
  Receipt Date: 20200930
  Transmission Date: 20201103
  Serious: Yes (Hospitalization)
  Sender: FDA-Public Use
  Company Number: CA-TEVA-2020-CA-1833512

PATIENT
  Age: 56 Year
  Sex: Male

DRUGS (22)
  1. ACTEMRA [Suspect]
     Active Substance: TOCILIZUMAB
     Route: 042
  2. TRAMADOL HYDROCHLORIDE. [Suspect]
     Active Substance: TRAMADOL HYDROCHLORIDE
     Dosage: 200 MILLIGRAM DAILY;
     Route: 065
  3. DIPHENHYDRAMINE HYDROCHLORIDE. [Concomitant]
     Active Substance: DIPHENHYDRAMINE HYDROCHLORIDE
     Route: 065
  4. METHOTREXATE. [Concomitant]
     Active Substance: METHOTREXATE
  5. PREDNISONE. [Concomitant]
     Active Substance: PREDNISONE
  6. SYMBICORT [Concomitant]
     Active Substance: BUDESONIDE\FORMOTEROL FUMARATE DIHYDRATE
     Route: 065
  7. ZOPICLONE [Concomitant]
     Active Substance: ZOPICLONE
     Route: 065
  8. RITUXIMAB. [Suspect]
     Active Substance: RITUXIMAB
     Route: 042
  9. FOLIC ACID. [Concomitant]
     Active Substance: FOLIC ACID
  10. HYDROCORTISONE. [Suspect]
     Active Substance: HYDROCORTISONE
     Route: 042
  11. ATORVASTATIN [Concomitant]
     Active Substance: ATORVASTATIN
     Route: 065
  12. HYDROXYCHLOROQUINE SULFATE. [Concomitant]
     Active Substance: HYDROXYCHLOROQUINE SULFATE
     Route: 065
  13. RAMIPRIL. [Concomitant]
     Active Substance: RAMIPRIL
  14. CLONAZEPAM. [Concomitant]
     Active Substance: CLONAZEPAM
     Route: 065
  15. CODEINE [Concomitant]
     Active Substance: CODEINE
  16. FLOMAX [Concomitant]
     Active Substance: TAMSULOSIN HYDROCHLORIDE
  17. DILTIAZEM. [Suspect]
     Active Substance: DILTIAZEM
     Route: 065
  18. TAMSULOSIN [Concomitant]
     Active Substance: TAMSULOSIN
  19. TYLENOL [Concomitant]
     Active Substance: ACETAMINOPHEN
     Route: 065
  20. MORPHINE SULFATE. [Suspect]
     Active Substance: MORPHINE SULFATE
     Route: 030
  21. ACETAMINOPHEN. [Concomitant]
     Active Substance: ACETAMINOPHEN
  22. HYDROXYCHLOROQUINE SULFATE. [Concomitant]
     Active Substance: HYDROXYCHLOROQUINE SULFATE
     Route: 065

REACTIONS (4)
  - Headache [Not Recovered/Not Resolved]
  - Angiopathy [Not Recovered/Not Resolved]
  - Perineal pain [Not Recovered/Not Resolved]
  - Tinnitus [Not Recovered/Not Resolved]
